FAERS Safety Report 6686313-1 (Version None)
Quarter: 2010Q2

REPORT INFORMATION
  Report Type: 
  Country: None (occurrence: None)
  Receive Date: 20100419
  Receipt Date: 20100412
  Transmission Date: 20101027
  Serious: Yes (Other)
  Sender: FDA-Public Use
  Company Number: US-PFIZER INC-2010046697

PATIENT
  Sex: Female
  Weight: 81.633 kg

DRUGS (2)
  1. DETROL LA [Suspect]
     Indication: HYPERTONIC BLADDER
     Dosage: 4 MG, 1X/DAY
     Route: 048
     Dates: start: 20100101
  2. NASACORT [Concomitant]
     Indication: SINUS DISORDER
     Dosage: UNK

REACTIONS (6)
  - EYE PAIN [None]
  - HEADACHE [None]
  - MEDICATION ERROR [None]
  - MIGRAINE [None]
  - OCULAR HYPERAEMIA [None]
  - POLLAKIURIA [None]
